FAERS Safety Report 7117572-9 (Version None)
Quarter: 2010Q4

REPORT INFORMATION
  Report Type: 
  Country: None (occurrence: None)
  Receive Date: 20101122
  Receipt Date: 20101112
  Transmission Date: 20110411
  Serious: Yes (Other)
  Sender: FDA-Public Use
  Company Number: US-PFIZER INC-2010149467

PATIENT
  Sex: Female
  Weight: 56.236 kg

DRUGS (2)
  1. EFFEXOR XR [Suspect]
     Indication: PANIC ATTACK
     Dosage: 225 MG, 1X/DAY
     Route: 048
     Dates: start: 20000101
  2. EFFEXOR XR [Suspect]
     Indication: SOCIAL PHOBIA

REACTIONS (5)
  - ANXIETY [None]
  - BIPOLAR II DISORDER [None]
  - DEPRESSION [None]
  - HYPOMANIA [None]
  - SOMNOLENCE [None]
